FAERS Safety Report 13652912 (Version 1)
Quarter: 2017Q2

REPORT INFORMATION
  Report Type: Spontaneous
  Country: US (occurrence: US)
  Receive Date: 20170614
  Receipt Date: 20170614
  Transmission Date: 20170830
  Serious: No
  Sender: FDA-Public Use
  Company Number: US-ROCHE-1342971

PATIENT
  Sex: Female

DRUGS (5)
  1. ZOFRAN [Concomitant]
     Active Substance: ONDANSETRON HYDROCHLORIDE
  2. XELODA [Suspect]
     Active Substance: CAPECITABINE
     Indication: MALIGNANT NEOPLASM OF AMPULLA OF VATER
     Dosage: 3 AM, 3 PM, X14 DS
     Route: 048
     Dates: start: 20140108
  3. SUCRALFATE. [Concomitant]
     Active Substance: SUCRALFATE
  4. MORPHINE [Concomitant]
     Active Substance: MORPHINE
  5. PROTONIX [Concomitant]
     Active Substance: PANTOPRAZOLE SODIUM

REACTIONS (1)
  - Fatigue [Not Recovered/Not Resolved]
